FAERS Safety Report 10336945 (Version 3)
Quarter: 2014Q3

REPORT INFORMATION
  Report Type: Spontaneous
  Country: FR (occurrence: JP)
  Receive Date: 20140723
  Receipt Date: 20140924
  Transmission Date: 20150326
  Serious: Yes (Hospitalization)
  Sender: FDA-Public Use
  Company Number: JP-FRI-1000069211

PATIENT
  Age: 62 Year
  Sex: Male

DRUGS (8)
  1. URSO [Concomitant]
     Active Substance: URSODIOL
  2. PROHEPARUM [Concomitant]
     Active Substance: CHOLINE BITARTRATE\CYSTEINE\INOSITOL\MAMMAL LIVER
  3. ALDACTONE [Concomitant]
     Active Substance: SPIRONOLACTONE
  4. DIAZEPAM. [Concomitant]
     Active Substance: DIAZEPAM
     Dates: start: 20140318, end: 20140319
  5. ALEVIATIN [Concomitant]
     Active Substance: PHENYTOIN SODIUM
     Dates: start: 20140319
  6. LIVACT [Concomitant]
  7. ACAMPROSATE [Suspect]
     Active Substance: ACAMPROSATE
     Indication: ALCOHOLISM
     Dosage: 1998 MG
     Route: 048
     Dates: start: 20140310
  8. FOSPHENYTOIN SODIUM. [Concomitant]
     Active Substance: FOSPHENYTOIN SODIUM
     Dates: start: 20140318, end: 20140318

REACTIONS (1)
  - Epilepsy [Recovered/Resolved]

NARRATIVE: CASE EVENT DATE: 20140318
